FAERS Safety Report 25384597 (Version 1)
Quarter: 2025Q2

REPORT INFORMATION
  Report Type: Spontaneous
  Country: US (occurrence: US)
  Receive Date: 20250602
  Receipt Date: 20250602
  Transmission Date: 20250717
  Serious: Yes (Other)
  Sender: CSL BEHRING
  Company Number: US-BEH-2025207893

PATIENT
  Sex: Male

DRUGS (4)
  1. HAEGARDA [Suspect]
     Active Substance: HUMAN C1-ESTERASE INHIBITOR
     Indication: Hereditary angioedema
     Dosage: 2000 IU, BIW((EVERY 3 OR 4 DAYS))
     Route: 058
     Dates: start: 20230407
  2. HAEGARDA [Suspect]
     Active Substance: HUMAN C1-ESTERASE INHIBITOR
     Indication: Prophylaxis
     Dosage: 3000 IU, BIW((EVERY 3 OR 4 DAYS))
     Route: 058
     Dates: start: 20230407
  3. CLARITIN [Concomitant]
     Active Substance: LORATADINE
  4. ICATIBANT [Concomitant]
     Active Substance: ICATIBANT ACETATE

REACTIONS (4)
  - Hereditary angioedema [Unknown]
  - Weight increased [Unknown]
  - Inability to afford medication [Unknown]
  - Product use issue [Unknown]
